FAERS Safety Report 15638696 (Version 1)
Quarter: 2018Q4

REPORT INFORMATION
  Report Type: Spontaneous
  Country: US (occurrence: US)
  Receive Date: 20181120
  Receipt Date: 20181120
  Transmission Date: 20190205
  Serious: No
  Sender: FDA-Public Use
  Company Number: US-JNJFOC-20180219689

PATIENT
  Age: 79 Year
  Sex: Female

DRUGS (7)
  1. POTASSIUM CHLORIDE. [Concomitant]
     Active Substance: POTASSIUM CHLORIDE
  2. MAGNESIUM [Concomitant]
     Active Substance: MAGNESIUM
  3. DEXAMETHASONE. [Concomitant]
     Active Substance: DEXAMETHASONE
  4. IMBRUVICA [Suspect]
     Active Substance: IBRUTINIB
     Indication: COLON CANCER
     Route: 048
     Dates: start: 20171227, end: 2018
  5. IRON [Concomitant]
     Active Substance: IRON
  6. IMBRUVICA [Suspect]
     Active Substance: IBRUTINIB
     Indication: COLON CANCER
     Route: 048
     Dates: start: 2018
  7. VITAMIN D [Concomitant]
     Active Substance: CHOLECALCIFEROL

REACTIONS (11)
  - Epistaxis [Recovered/Resolved]
  - Abdominal discomfort [Recovered/Resolved]
  - Asthenia [Recovered/Resolved]
  - Product use in unapproved indication [Unknown]
  - Nausea [Recovered/Resolved]
  - Vulvovaginal pruritus [Recovered/Resolved]
  - Vulvovaginal pain [Recovered/Resolved]
  - Rash macular [Recovered/Resolved]
  - Diarrhoea [Recovered/Resolved]
  - Off label use [Unknown]
  - Appetite disorder [Recovered/Resolved]

NARRATIVE: CASE EVENT DATE: 20171227
